FAERS Safety Report 7915555-X (Version None)
Quarter: 2011Q4

REPORT INFORMATION
  Report Type: 
  Country: None (occurrence: None)
  Receive Date: 20111115
  Receipt Date: 20110817
  Transmission Date: 20120403
  Serious: No
  Sender: FDA-Public Use
  Company Number: US-BRISTOL-MYERS SQUIBB COMPANY-15979032

PATIENT
  Sex: Male

DRUGS (1)
  1. YERVOY [Suspect]
     Route: 042

REACTIONS (1)
  - DIARRHOEA [None]
